FAERS Safety Report 5420836-8 (Version None)
Quarter: 2007Q3

REPORT INFORMATION
  Report Type: 
  Country: None (occurrence: None)
  Receive Date: 20070821
  Receipt Date: 20070807
  Transmission Date: 20080115
  Serious: Yes (Hospitalization, Disabling)
  Sender: FDA-Public Use
  Company Number: FR-SP-E2007-05486

PATIENT
  Age: 21 Year
  Sex: Male

DRUGS (2)
  1. TUBERTEST [Suspect]
     Indication: TUBERCULIN TEST
     Route: 065
     Dates: start: 20060506
  2. TUBERTEST [Suspect]
     Route: 065
     Dates: start: 20060506

REACTIONS (8)
  - ABSCESS [None]
  - CHILLS [None]
  - FEELING HOT [None]
  - HEMIPLEGIA [None]
  - INFLAMMATION [None]
  - INJECTED LIMB MOBILITY DECREASED [None]
  - PAIN [None]
  - PYREXIA [None]
